FAERS Safety Report 17322961 (Version 1)
Quarter: 2020Q1

REPORT INFORMATION
  Report Type: Spontaneous
  Country: US (occurrence: US)
  Receive Date: 20200124
  Receipt Date: 20200124
  Transmission Date: 20200409
  Serious: Yes (Hospitalization, Other)
  Sender: FDA-Public Use
  Company Number: None

PATIENT
  Age: 11 Year
  Sex: Male

DRUGS (11)
  1. ILARIS [Suspect]
     Active Substance: CANAKINUMAB
     Indication: JUVENILE IDIOPATHIC ARTHRITIS
     Dosage: ?          OTHER FREQUENCY:EVERY 4 WEEKS;?
     Route: 058
     Dates: start: 20191225
  2. SOLU-CORTEF [Concomitant]
     Active Substance: HYDROCORTISONE SODIUM SUCCINATE
  3. A-HYDROCORT [Concomitant]
     Active Substance: HYDROCORTISONE SODIUM SUCCINATE
  4. MELATONIN [Concomitant]
     Active Substance: MELATONIN
  5. KATERZIA [Concomitant]
     Active Substance: AMLODIPINE BENZOATE
  6. PREDNISOLONE. [Concomitant]
     Active Substance: PREDNISOLONE
  7. M-PAP [Concomitant]
     Active Substance: ACETAMINOPHEN
  8. FERROUS SULF DRO [Concomitant]
  9. POT CHLORIDE [Concomitant]
     Active Substance: POTASSIUM CHLORIDE
  10. RETACRIT [Suspect]
     Active Substance: EPOETIN ALFA-EPBX
     Indication: ANAEMIA
     Dosage: ?          OTHER FREQUENCY:EVERY MON + THURS;?
     Route: 058
     Dates: start: 20191101
  11. VIT. D3 [Concomitant]

REACTIONS (2)
  - Condition aggravated [None]
  - Viral infection [None]
